FAERS Safety Report 6155940-2 (Version None)
Quarter: 2009Q2

REPORT INFORMATION
  Report Type: 
  Country: None (occurrence: None)
  Receive Date: 20090415
  Receipt Date: 20090407
  Transmission Date: 20091009
  Serious: Yes (Death)
  Sender: FDA-Public Use
  Company Number: FR-ROCHE-613010

PATIENT
  Sex: Male

DRUGS (10)
  1. CELLCEPT [Suspect]
     Indication: DRUG USE FOR UNKNOWN INDICATION
     Route: 048
     Dates: end: 20090107
  2. BACTRIM [Suspect]
     Indication: DRUG USE FOR UNKNOWN INDICATION
     Dosage: DOSE REPORTED AS 1 DOSE DAILY
     Route: 048
     Dates: start: 20090106, end: 20090107
  3. PLAVIX [Suspect]
     Indication: DRUG USE FOR UNKNOWN INDICATION
     Route: 048
     Dates: end: 20090107
  4. PREDNISOLONE [Suspect]
     Indication: DRUG USE FOR UNKNOWN INDICATION
     Route: 048
     Dates: end: 20090107
  5. PROGRAF [Suspect]
     Indication: DRUG USE FOR UNKNOWN INDICATION
     Route: 048
     Dates: end: 20090107
  6. OCTAGAM [Suspect]
     Indication: DRUG USE FOR UNKNOWN INDICATION
     Dosage: FORM: INFUSION
     Route: 042
     Dates: start: 20090106, end: 20090107
  7. VASTEN [Concomitant]
  8. KARDEGIC [Concomitant]
  9. TRIATEC [Concomitant]
  10. CARDENSIEL [Concomitant]

REACTIONS (4)
  - CARDIO-RESPIRATORY ARREST [None]
  - CONVULSION [None]
  - MALAISE [None]
  - NAUSEA [None]
